FAERS Safety Report 20638022 (Version 1)
Quarter: 2022Q1

REPORT INFORMATION
  Report Type: Spontaneous
  Country: DK (occurrence: DK)
  Receive Date: 20220325
  Receipt Date: 20220325
  Transmission Date: 20220423
  Serious: Yes (Hospitalization, Disabling)
  Sender: FDA-Public Use
  Company Number: None

PATIENT
  Age: 54 Year
  Sex: Male

DRUGS (1)
  1. PREDNISOLONE [Suspect]
     Active Substance: PREDNISOLONE
     Indication: Polymyalgia rheumatica
     Dosage: DOSAGE: VARYING DOSAGES MAX 25MG TO MIN 5MG DAILY (MOSTLY 6.25 MG -15 MG). STRENGTH: UNKNOWN,STARTDA
     Route: 048
     Dates: end: 20190829

REACTIONS (5)
  - Abdominal pain upper [Unknown]
  - Adrenocortical insufficiency acute [Not Recovered/Not Resolved]
  - Headache [Unknown]
  - Nausea [Unknown]
  - Addison^s disease [Not Recovered/Not Resolved]

NARRATIVE: CASE EVENT DATE: 20180801
